FAERS Safety Report 19974115 (Version 1)
Quarter: 2021Q4

REPORT INFORMATION
  Report Type: Spontaneous
  Country: US (occurrence: US)
  Receive Date: 20211020
  Receipt Date: 20211020
  Transmission Date: 20220303
  Serious: Yes (Other)
  Sender: FDA-Public Use
  Company Number: None

PATIENT
  Age: 39 Year
  Sex: Male
  Weight: 103.5 kg

DRUGS (1)
  1. HERBALS\MITRAGYNINE [Suspect]
     Active Substance: HERBALS\MITRAGYNINE
     Dates: start: 20200201

REACTIONS (10)
  - Dependence [None]
  - Alcoholism [None]
  - Insomnia [None]
  - Anxiety [None]
  - Restless legs syndrome [None]
  - Aggression [None]
  - Feeling abnormal [None]
  - Nausea [None]
  - Yellow skin [None]
  - Liver injury [None]

NARRATIVE: CASE EVENT DATE: 20211020
